FAERS Safety Report 13644269 (Version 2)
Quarter: 2017Q2

REPORT INFORMATION
  Report Type: Spontaneous
  Country: AE (occurrence: AE)
  Receive Date: 20170612
  Receipt Date: 20170615
  Transmission Date: 20170830
  Serious: Yes (Other)
  Sender: FDA-Public Use
  Company Number: AE-IPSEN BIOPHARMACEUTICALS, INC.-2017-05162

PATIENT
  Sex: Female

DRUGS (3)
  1. DYSPORT [Suspect]
     Active Substance: ABOBOTULINUMTOXINA
     Indication: HYPERHIDROSIS
     Dosage: 800 UNITS
     Route: 065
     Dates: start: 201612, end: 201612
  2. DYSPORT [Suspect]
     Active Substance: ABOBOTULINUMTOXINA
     Indication: HYPERHIDROSIS
     Dosage: 500 UNITS
     Route: 065
     Dates: start: 201705, end: 201705
  3. DYSPORT [Suspect]
     Active Substance: ABOBOTULINUMTOXINA
     Indication: OFF LABEL USE
     Dosage: 500 UNITS
     Route: 065
     Dates: start: 2017, end: 2017

REACTIONS (7)
  - Off label use [Unknown]
  - Inappropriate schedule of drug administration [Unknown]
  - Motor dysfunction [Recovered/Resolved]
  - Neuromuscular toxicity [Recovered/Resolved]
  - Dysphonia [Recovered/Resolved]
  - Muscular weakness [Recovering/Resolving]
  - Dysphagia [Recovered/Resolved]

NARRATIVE: CASE EVENT DATE: 2017
